FAERS Safety Report 23980499 (Version 1)
Quarter: 2024Q2

REPORT INFORMATION
  Report Type: Report from Study
  Country: AU (occurrence: AU)
  Receive Date: 20240617
  Receipt Date: 20240617
  Transmission Date: 20240716
  Serious: Yes (Other)
  Sender: FDA-Public Use
  Company Number: AU-BoehringerIngelheim-2024-BI-033363

PATIENT

DRUGS (2)
  1. MELOXICAM [Suspect]
     Active Substance: MELOXICAM
     Indication: Product used for unknown indication
  2. WARFARIN [Suspect]
     Active Substance: WARFARIN
     Indication: Product used for unknown indication

REACTIONS (2)
  - Vaginal haemorrhage [Unknown]
  - Drug interaction [Unknown]
